FAERS Safety Report 10091849 (Version 2)
Quarter: 2015Q3

REPORT INFORMATION
  Report Type: Spontaneous
  Country: US (occurrence: US)
  Receive Date: 20140421
  Receipt Date: 20150813
  Transmission Date: 20151125
  Serious: No
  Sender: FDA-Public Use
  Company Number: US-GILEAD-2012-0067079

PATIENT
  Age: 66 Year
  Sex: Male

DRUGS (3)
  1. LETAIRIS [Suspect]
     Active Substance: AMBRISENTAN
     Indication: COR PULMONALE CHRONIC
     Dosage: 5 MG, QD
     Route: 048
  2. ADCIRCA [Suspect]
     Active Substance: TADALAFIL
  3. REMODULIN [Suspect]
     Active Substance: TREPROSTINIL

REACTIONS (1)
  - Staphylococcal infection [Unknown]
